FAERS Safety Report 8267242-9 (Version None)
Quarter: 2012Q2

REPORT INFORMATION
  Report Type: 
  Country: None (occurrence: None)
  Receive Date: 20120409
  Receipt Date: 20120406
  Transmission Date: 20120825
  Serious: Yes (Death, Hospitalization, Other)
  Sender: FDA-Public Use
  Company Number: US-PFIZER INC-2012087564

PATIENT
  Sex: Male
  Weight: 88.435 kg

DRUGS (5)
  1. CHANTIX [Suspect]
     Indication: SMOKING CESSATION THERAPY
     Dosage: UNKNOWN DOSE DAILY
     Route: 048
     Dates: start: 20120303, end: 20120301
  2. GLYBURIDE [Concomitant]
     Indication: DIABETES MELLITUS
     Dosage: UNK
     Dates: start: 20120101
  3. LOVASTATIN [Concomitant]
     Indication: BLOOD CHOLESTEROL INCREASED
     Dosage: 20 MG, DAILY
  4. CHANTIX [Suspect]
     Dosage: UNKNOWN DOSE AND FREQUENCY
     Route: 048
     Dates: start: 20120301, end: 20120331
  5. METFORMIN [Concomitant]
     Indication: DIABETES MELLITUS
     Dosage: 1000 MG, 2X/DAY
     Dates: start: 20120101

REACTIONS (6)
  - BRAIN DEATH [None]
  - CONVULSION [None]
  - DRUG INEFFECTIVE [None]
  - BRAIN HYPOXIA [None]
  - COMA [None]
  - DYSPNOEA [None]
